FAERS Safety Report 7391727-0 (Version None)
Quarter: 2011Q2

REPORT INFORMATION
  Report Type: 
  Country: None (occurrence: None)
  Receive Date: 20110404
  Receipt Date: 20110323
  Transmission Date: 20111010
  Serious: Yes (Other)
  Sender: FDA-Public Use
  Company Number: AU-JNJFOC-20110311348

PATIENT
  Age: 65 Year
  Sex: Male

DRUGS (13)
  1. KIVEXA [Suspect]
     Indication: HIV INFECTION
     Route: 048
  2. BACTRIM [Concomitant]
  3. DARUNAVIR [Suspect]
     Indication: HIV INFECTION
     Route: 048
  4. FUZEON [Suspect]
     Indication: HIV INFECTION
     Route: 065
  5. ETRAVIRINE [Suspect]
     Indication: HIV INFECTION
     Route: 048
  6. TENOFOVIR DISOPROXIL FUMARATE [Suspect]
     Indication: HIV INFECTION
     Route: 065
  7. ACYCLOVIR [Concomitant]
  8. GASTRO GEL [Concomitant]
  9. IMODIUM [Concomitant]
  10. MK-0518 [Suspect]
     Indication: HIV INFECTION
     Route: 048
  11. RITONAVIR [Suspect]
     Indication: HIV INFECTION
     Route: 048
  12. ABACAVIR SULFATE LAMIVUDINE AND ZIDOVUDINE [Suspect]
     Indication: HIV INFECTION
     Route: 065
  13. VALTREX [Concomitant]

REACTIONS (2)
  - SQUAMOUS CELL CARCINOMA [None]
  - BOWEN'S DISEASE [None]
